FAERS Safety Report 26158666 (Version 1)
Quarter: 2025Q4

REPORT INFORMATION
  Report Type: Spontaneous
  Country: US (occurrence: US)
  Receive Date: 20251215
  Receipt Date: 20251215
  Transmission Date: 20260118
  Serious: Yes (Disabling, Other)
  Sender: NOVO NORDISK
  Company Number: US-NOVOPROD-1581582

PATIENT
  Sex: Female

DRUGS (1)
  1. TRESIBA [Suspect]
     Active Substance: INSULIN DEGLUDEC
     Indication: Type 2 diabetes mellitus
     Dosage: 23-26 UNITS TWICE A DAY
     Route: 058
     Dates: start: 2024

REACTIONS (12)
  - Muscle disorder [Unknown]
  - Blindness [Unknown]
  - Deafness [Unknown]
  - Fibromyalgia [Unknown]
  - Multiple sclerosis [Unknown]
  - Neoplasm malignant [Unknown]
  - Post-traumatic stress disorder [Unknown]
  - Rheumatoid arthritis [Unknown]
  - Injection site pain [Unknown]
  - Contusion [Unknown]
  - Blood glucose increased [Unknown]
  - Off label use [Unknown]
